FAERS Safety Report 6671990-1 (Version None)
Quarter: 2010Q2

REPORT INFORMATION
  Report Type: 
  Country: None (occurrence: None)
  Receive Date: 20100405
  Receipt Date: 20100319
  Transmission Date: 20101027
  Serious: Yes (Other)
  Sender: FDA-Public Use
  Company Number: 009134

PATIENT
  Sex: Female
  Weight: 84.9 kg

DRUGS (5)
  1. CERTOLIZUMAB PEGOL [Suspect]
     Indication: RHEUMATOID ARTHRITIS
     Dosage: (400 MG 1X/2 WEEKS SUBCUTANEOUS)
     Route: 058
     Dates: end: 20100315
  2. METHOTREXATE [Concomitant]
  3. FOLIC ACID [Concomitant]
  4. PREVACID [Concomitant]
  5. TEMAZEPAM [Concomitant]

REACTIONS (1)
  - TUBERCULOSIS TEST POSITIVE [None]
